FAERS Safety Report 8560779-4 (Version None)
Quarter: 2012Q3

REPORT INFORMATION
  Report Type: 
  Country: None (occurrence: None)
  Receive Date: 20120802
  Receipt Date: 20091011
  Transmission Date: 20120928
  Serious: Yes (Death, Other)
  Sender: FDA-Public Use
  Company Number: CO-PFIZER INC-2012185551

PATIENT
  Age: 60 Year
  Sex: Female

DRUGS (4)
  1. METFORMIN [Concomitant]
     Dosage: 850 MG, 2X/DAY
  2. LIPITOR [Suspect]
     Dosage: 10 MG, 1X/DAY
  3. GLIBENCLAMIDE [Concomitant]
     Dosage: 5 MG, 3X/DAY
  4. METOPROLOL TARTRATE [Concomitant]
     Dosage: 50 MG, 2X/DAY

REACTIONS (5)
  - NASAL OBSTRUCTION [None]
  - ACUTE MYOCARDIAL INFARCTION [None]
  - HEADACHE [None]
  - DEATH [None]
  - DYSPNOEA EXERTIONAL [None]
